FAERS Safety Report 26091406 (Version 1)
Quarter: 2025Q4

REPORT INFORMATION
  Report Type: Spontaneous
  Country: US (occurrence: None)
  Receive Date: 20251125
  Receipt Date: 20251125
  Transmission Date: 20260117
  Serious: Yes (Hospitalization)
  Sender: FDA-CTU
  Company Number: None

PATIENT
  Age: 84 Year
  Sex: Female

DRUGS (1)
  1. ADEMPAS [Suspect]
     Active Substance: RIOCIGUAT
     Indication: Pulmonary hypertension
     Dosage: 2MG TID ORAL ?
     Route: 048
     Dates: start: 20250214

REACTIONS (1)
  - Squamous cell carcinoma of the tongue [None]

NARRATIVE: CASE EVENT DATE: 20251108
